FAERS Safety Report 14372102 (Version 1)
Quarter: 2018Q1

REPORT INFORMATION
  Report Type: Spontaneous
  Country: US (occurrence: US)
  Receive Date: 20180110
  Receipt Date: 20180110
  Transmission Date: 20180509
  Serious: No
  Sender: FDA-Public Use
  Company Number: US-TEVA-822774USA

PATIENT

DRUGS (1)
  1. ESTRADIOL. [Suspect]
     Active Substance: ESTRADIOL

REACTIONS (4)
  - Product physical issue [Unknown]
  - Vulvovaginal dryness [Unknown]
  - Drug ineffective [Unknown]
  - Product packaging issue [Unknown]
